FAERS Safety Report 5472028-4 (Version None)
Quarter: 2007Q3

REPORT INFORMATION
  Report Type: 
  Country: None (occurrence: None)
  Receive Date: 20070928
  Receipt Date: 20070918
  Transmission Date: 20080115
  Serious: Yes (Hospitalization, Other)
  Sender: FDA-Public Use
  Company Number: US-PFIZER INC-2007078252

PATIENT
  Sex: Female
  Weight: 47.272 kg

DRUGS (16)
  1. CHANTIX [Suspect]
     Indication: SMOKING CESSATION THERAPY
  2. PREDNISONE [Concomitant]
  3. SINGULAIR [Concomitant]
  4. ESTROTEST [Concomitant]
     Dosage: FREQ:DAILY
  5. PROTONIX [Concomitant]
  6. MOBIC [Concomitant]
  7. KLONOPIN [Concomitant]
  8. AMBIEN [Concomitant]
  9. LEXAPRO [Concomitant]
  10. OXYGEN [Concomitant]
     Dosage: TEXT:2 LITERS
  11. VESICARE [Concomitant]
  12. ALBUTEROL [Concomitant]
     Route: 055
  13. ADVAIR DISKUS 100/50 [Concomitant]
     Dosage: TEXT:250/50
  14. ACTONEL [Concomitant]
  15. CYMBALTA [Concomitant]
  16. PREVACID [Concomitant]

REACTIONS (6)
  - BLOOD DISORDER [None]
  - BLOOD POTASSIUM DECREASED [None]
  - BRONCHITIS [None]
  - NAUSEA [None]
  - NIGHTMARE [None]
  - TREMOR [None]
